FAERS Safety Report 5310032-7 (Version None)
Quarter: 2007Q2

REPORT INFORMATION
  Report Type: 
  Country: None (occurrence: None)
  Receive Date: 20070427
  Receipt Date: 20070424
  Transmission Date: 20071010
  Serious: Yes (Hospitalization)
  Sender: FDA-Public Use
  Company Number: US-GLAXOSMITHKLINE-A0648774A

PATIENT
  Age: 64 Year
  Sex: Female
  Weight: 58.6 kg

DRUGS (1)
  1. TOPOTECAN HYDROCHLORIDE [Suspect]
     Indication: SMALL CELL LUNG CANCER STAGE UNSPECIFIED
     Dosage: 6MGM2 CYCLIC
     Route: 042
     Dates: start: 20070410

REACTIONS (5)
  - CONDUCTION DISORDER [None]
  - ELECTROCARDIOGRAM QT PROLONGED [None]
  - ELECTROCARDIOGRAM T WAVE INVERSION [None]
  - SYNCOPE [None]
  - VENTRICULAR EXTRASYSTOLES [None]
